FAERS Safety Report 15954904 (Version 1)
Quarter: 2019Q1

REPORT INFORMATION
  Report Type: Spontaneous
  Country: PL (occurrence: PL)
  Receive Date: 20190213
  Receipt Date: 20190213
  Transmission Date: 20190417
  Serious: Yes (Life-Threatening, Other)
  Sender: FDA-Public Use
  Company Number: PL-SA-2019SA038684

PATIENT
  Age: 89 Year
  Sex: Female
  Weight: 56 kg

DRUGS (1)
  1. CLEXANE [Suspect]
     Active Substance: ENOXAPARIN SODIUM
     Indication: ATRIAL FIBRILLATION
     Dosage: 60 MG EVERY 2 DAYS
     Route: 058
     Dates: start: 20170718, end: 20170722

REACTIONS (4)
  - Haemorrhagic diathesis [Recovered/Resolved]
  - Wound haemorrhage [Recovered/Resolved]
  - Post procedural haemorrhage [Recovered/Resolved]
  - Internal fixation of fracture [Recovered/Resolved]

NARRATIVE: CASE EVENT DATE: 20170722
